FAERS Safety Report 6039958-6 (Version None)
Quarter: 2009Q1

REPORT INFORMATION
  Report Type: 
  Country: None (occurrence: None)
  Receive Date: 20090116
  Receipt Date: 20071101
  Transmission Date: 20090719
  Serious: No
  Sender: FDA-Public Use
  Company Number: US-BRISTOL-MYERS SQUIBB COMPANY-13967161

PATIENT
  Age: 20 Year
  Sex: Male

DRUGS (1)
  1. ABILIFY [Suspect]
     Indication: BIPOLAR I DISORDER
     Route: 048

REACTIONS (2)
  - FEELING ABNORMAL [None]
  - MUSCLE TWITCHING [None]
